FAERS Safety Report 6313029-3 (Version None)
Quarter: 2009Q3

REPORT INFORMATION
  Report Type: 
  Country: None (occurrence: None)
  Receive Date: 20090818
  Receipt Date: 20090810
  Transmission Date: 20100115
  Serious: Yes (Disabling)
  Sender: FDA-Public Use
  Company Number: JP-ASTRAZENECA-2009SE05697

PATIENT
  Age: 73 Year
  Sex: Male
  Weight: 48 kg

DRUGS (5)
  1. ANAPEINE [Suspect]
     Indication: PAIN MANAGEMENT
     Route: 053
     Dates: start: 20081218, end: 20081218
  2. ANAPEINE [Suspect]
     Route: 053
     Dates: start: 20081218, end: 20081220
  3. AMARYL [Concomitant]
     Indication: TYPE 2 DIABETES MELLITUS
     Route: 048
  4. URSO 250 [Concomitant]
     Route: 048
  5. DIOVAN [Concomitant]
     Indication: HYPERTENSION
     Route: 048

REACTIONS (1)
  - PERONEAL NERVE PALSY [None]
